FAERS Safety Report 12195242 (Version 5)
Quarter: 2016Q3

REPORT INFORMATION
  Report Type: Report from Study
  Country: BR (occurrence: BR)
  Receive Date: 20160321
  Receipt Date: 20160919
  Transmission Date: 20161109
  Serious: Yes (Hospitalization, Other)
  Sender: FDA-Public Use
  Company Number: BR-JNJFOC-20160314471

PATIENT
  Age: 76 Year
  Sex: Female
  Weight: 51 kg

DRUGS (3)
  1. METHOTREXATE. [Concomitant]
     Active Substance: METHOTREXATE
     Route: 065
  2. PARACETAMOL [Concomitant]
     Active Substance: ACETAMINOPHEN
     Route: 065
  3. SIMPONI [Suspect]
     Active Substance: GOLIMUMAB
     Indication: RHEUMATOID ARTHRITIS
     Route: 058
     Dates: start: 20130627, end: 2016

REACTIONS (4)
  - Rheumatoid arthritis [Not Recovered/Not Resolved]
  - Arthralgia [Recovering/Resolving]
  - Diarrhoea [Unknown]
  - Viral infection [Unknown]

NARRATIVE: CASE EVENT DATE: 2015
